FAERS Safety Report 7874535-3 (Version None)
Quarter: 2011Q4

REPORT INFORMATION
  Report Type: 
  Country: None (occurrence: None)
  Receive Date: 20111030
  Receipt Date: 20111018
  Transmission Date: 20120403
  Serious: Yes (Hospitalization)
  Sender: FDA-Public Use
  Company Number: DE-CELGENEUS-062-C5013-11092975

PATIENT
  Age: 48 Year
  Sex: Male
  Weight: 78.5 kg

DRUGS (8)
  1. PANTOPRAZOLE [Concomitant]
     Indication: PROPHYLAXIS
     Dosage: 40 MILLIGRAM
     Route: 048
     Dates: end: 20111018
  2. ASPIRIN [Concomitant]
     Indication: THROMBOSIS PROPHYLAXIS
     Dosage: 100 MILLIGRAM
     Route: 048
     Dates: start: 20110920
  3. ALLOPURINOL [Concomitant]
     Indication: HYPERCALCAEMIA
     Dosage: 300 MILLIGRAM
     Route: 048
     Dates: start: 20110917, end: 20111018
  4. LENALIDOMIDE [Suspect]
     Dosage: REDUCED DOSE
     Route: 048
     Dates: start: 20110930, end: 20111004
  5. LENALIDOMIDE [Suspect]
     Route: 048
     Dates: start: 20111018, end: 20111018
  6. LENALIDOMIDE [Suspect]
     Indication: CHRONIC LYMPHOCYTIC LEUKAEMIA
     Route: 048
     Dates: start: 20110920, end: 20110923
  7. CEFUROXIME [Concomitant]
     Indication: INFECTION PROPHYLAXIS
     Dosage: 200 MILLIGRAM
     Route: 048
     Dates: start: 20111011, end: 20111018
  8. LENALIDOMIDE [Suspect]
     Dosage: SAME DOSE
     Route: 048
     Dates: start: 20111007

REACTIONS (5)
  - PNEUMONIA [None]
  - TUMOUR LYSIS SYNDROME [None]
  - TUMOUR FLARE [None]
  - HYPERCALCAEMIA [None]
  - RENAL FAILURE ACUTE [None]
